FAERS Safety Report 7671736-4 (Version None)
Quarter: 2011Q3

REPORT INFORMATION
  Report Type: 
  Country: None (occurrence: None)
  Receive Date: 20110809
  Receipt Date: 20110803
  Transmission Date: 20111222
  Serious: Yes (Hospitalization, Other)
  Sender: FDA-Public Use
  Company Number: US-PFIZER INC-2011113245

PATIENT
  Sex: Male

DRUGS (7)
  1. SUTENT [Suspect]
     Indication: METASTATIC RENAL CELL CARCINOMA
     Dosage: 50 MG, 1X/DAY
     Route: 048
     Dates: start: 20101122, end: 20110401
  2. SUTENT [Suspect]
     Dosage: 37.5 MG, UNK
     Dates: start: 20110617, end: 20110629
  3. SUTENT [Suspect]
     Dosage: 25 MG DAILY 4 WEEKS ON, 2 OFF
  4. ATENOLOL [Suspect]
  5. SUTENT [Suspect]
     Dosage: 37.5 MG, 1X/DAY
     Route: 048
     Dates: start: 20110425
  6. VESICARE [Suspect]
  7. GLIPIZIDE [Suspect]
     Dosage: UNK

REACTIONS (6)
  - ARRHYTHMIA [None]
  - PALMAR-PLANTAR ERYTHRODYSAESTHESIA SYNDROME [None]
  - LOSS OF CONSCIOUSNESS [None]
  - MOBILITY DECREASED [None]
  - IMPAIRED HEALING [None]
  - EPISTAXIS [None]
